FAERS Safety Report 4870746-X (Version None)
Quarter: 2005Q4

REPORT INFORMATION
  Report Type: 
  Country: None (occurrence: None)
  Receive Date: 20051229
  Receipt Date: 20051219
  Transmission Date: 20060501
  Serious: Yes (Other)
  Sender: FDA-Public Use
  Company Number: FR200512002958

PATIENT
  Age: 81 Year
  Sex: Male

DRUGS (1)
  1. XIGRIS [Suspect]
     Indication: SEPSIS
     Dosage: 24 UG/KG/HR, INTRAVENOUS
     Route: 042
     Dates: start: 20051218

REACTIONS (1)
  - THROMBOCYTOPENIA [None]
